FAERS Safety Report 7644490-X (Version None)
Quarter: 2011Q3

REPORT INFORMATION
  Report Type: 
  Country: None (occurrence: None)
  Receive Date: 20110729
  Receipt Date: 20110726
  Transmission Date: 20111222
  Serious: Yes (Other)
  Sender: FDA-Public Use
  Company Number: GB-ROCHE-792504

PATIENT

DRUGS (2)
  1. LEFLUNOMIDE [Concomitant]
     Route: 065
  2. ACTEMRA [Suspect]
     Route: 065

REACTIONS (1)
  - NEUROPATHY PERIPHERAL [None]
